FAERS Safety Report 4534504-8 (Version None)
Quarter: 2004Q4

REPORT INFORMATION
  Report Type: 
  Country: None (occurrence: None)
  Receive Date: 20041214
  Receipt Date: 20041026
  Transmission Date: 20050328
  Serious: No
  Sender: FDA-Public Use
  Company Number: 2004241306US

PATIENT
  Sex: Female
  Weight: 59 kg

DRUGS (5)
  1. BEXTRA [Suspect]
     Indication: OSTEOARTHRITIS
     Dosage: 10 MG, QD, ORAL
     Route: 048
  2. WELLBUTRIN [Suspect]
  3. LEXAPRO [Suspect]
     Indication: PSYCHOMOTOR HYPERACTIVITY
     Dosage: 10 MG, QD, ORAL
     Route: 048
  4. MULTIVITAMINS (PANTHENOL, RETINAL, ERGOCALCIFEROL) [Concomitant]
  5. VITAMIN E [Concomitant]

REACTIONS (2)
  - PSYCHOMOTOR HYPERACTIVITY [None]
  - WEIGHT INCREASED [None]
